FAERS Safety Report 17785667 (Version 1)
Quarter: 2020Q2

REPORT INFORMATION
  Report Type: Other
  Country: SA (occurrence: SA)
  Receive Date: 20200513
  Receipt Date: 20200513
  Transmission Date: 20200714
  Serious: Yes (Death, Congenital Anomaly)
  Sender: FDA-Public Use
  Company Number: SA-NOSTRUM LABORATORIES, INC.-2083758

PATIENT
  Sex: Female

DRUGS (2)
  1. VALPROIC ACID SOLUTION USP, 250 MG/5 ML [Suspect]
     Active Substance: VALPROIC ACID
     Indication: EPILEPSY
     Route: 048
  2. LAMOTRIGINE. [Concomitant]
     Active Substance: LAMOTRIGINE
     Route: 048

REACTIONS (1)
  - Anencephaly [Fatal]
